FAERS Safety Report 9846354 (Version 6)
Quarter: 2014Q4

REPORT INFORMATION
  Report Type: Report from Study
  Country: CL (occurrence: CL)
  Receive Date: 20140127
  Receipt Date: 20141201
  Transmission Date: 20150529
  Serious: Yes (Other)
  Sender: FDA-Public Use
  Company Number: CL-BRISTOL-MYERS SQUIBB COMPANY-15816416

PATIENT
  Age: 39 Year
  Sex: Female

DRUGS (12)
  1. ANTIDEPRESSANT [Concomitant]
     Active Substance: UNSPECIFIED INGREDIENT
  2. CLONAZEPAM. [Concomitant]
     Active Substance: CLONAZEPAM
  3. OXCARBAZEPINE. [Concomitant]
     Active Substance: OXCARBAZEPINE
  4. SENNA [Concomitant]
     Active Substance: SENNA LEAF\SENNOSIDES\SENNOSIDES A AND B
  5. ORENCIA [Suspect]
     Active Substance: ABATACEPT
     Indication: PSORIATIC ARTHROPATHY
     Dosage: 3 VIALS,INF,ENDOVENOUSLY;20MAY2010?START-20MAY10 TO 23NOV14
     Route: 042
     Dates: start: 20081001
  6. PARACETAMOL [Concomitant]
     Active Substance: ACETAMINOPHEN
  7. TRAMADOL [Concomitant]
     Active Substance: TRAMADOL
  8. CELEBRA [Suspect]
     Active Substance: CELECOXIB
     Indication: PAIN
  9. DESOGESTREL [Concomitant]
     Active Substance: DESOGESTREL
  10. OMEPRAZOLE. [Suspect]
     Active Substance: OMEPRAZOLE
  11. LEVOFLOXACIN. [Concomitant]
     Active Substance: LEVOFLOXACIN
  12. ZALDIAR [Concomitant]
     Active Substance: ACETAMINOPHEN\TRAMADOL HYDROCHLORIDE

REACTIONS (13)
  - Drug hypersensitivity [Unknown]
  - Fatigue [Unknown]
  - Tonsillitis [Recovering/Resolving]
  - Viral infection [Unknown]
  - Malaise [Recovering/Resolving]
  - Nasopharyngitis [Recovering/Resolving]
  - Movement disorder [Unknown]
  - Contusion [Unknown]
  - Pain [Unknown]
  - Bronchitis [Recovering/Resolving]
  - Fall [Recovering/Resolving]
  - Obstructive airways disorder [Unknown]
  - Somnolence [Unknown]

NARRATIVE: CASE EVENT DATE: 20110602
